FAERS Safety Report 4914987-1 (Version None)
Quarter: 2006Q1

REPORT INFORMATION
  Report Type: 
  Country: None (occurrence: None)
  Receive Date: 20060217
  Receipt Date: 20060116
  Transmission Date: 20060701
  Serious: Yes (Death, Hospitalization)
  Sender: FDA-Public Use
  Company Number: US-AMGEN-US165076

PATIENT
  Sex: Male

DRUGS (10)
  1. ENBREL [Suspect]
     Indication: RHEUMATOID ARTHRITIS
     Route: 058
     Dates: start: 20030102, end: 20040101
  2. KINERET [Suspect]
     Indication: RHEUMATOID ARTHRITIS
     Route: 058
     Dates: start: 20040809, end: 20050601
  3. PREDNISONE [Suspect]
     Route: 048
     Dates: start: 20020809, end: 20050825
  4. METHOTREXATE [Suspect]
     Route: 048
     Dates: start: 20020809, end: 20050601
  5. CELEBREX [Suspect]
     Route: 048
     Dates: end: 20050822
  6. ALPRAZOLAM [Concomitant]
     Dates: end: 20050825
  7. HYDROXYZINE [Concomitant]
     Route: 048
     Dates: end: 20050825
  8. FOLIC ACID [Concomitant]
     Route: 048
     Dates: start: 20020809, end: 20050825
  9. INDOCIN [Concomitant]
     Dates: end: 20050825
  10. ADVIL [Concomitant]
     Dates: end: 20050825

REACTIONS (11)
  - ASCITES [None]
  - CONDITION AGGRAVATED [None]
  - EXTREMITY NECROSIS [None]
  - GENERALISED OEDEMA [None]
  - HEPATIC FIBROSIS [None]
  - HEPATIC STEATOSIS [None]
  - MITRAL VALVE INCOMPETENCE [None]
  - PLEURAL EFFUSION [None]
  - RENAL FAILURE ACUTE [None]
  - TRICUSPID VALVE INCOMPETENCE [None]
  - WHITE BLOOD CELL COUNT DECREASED [None]
